FAERS Safety Report 9779012 (Version 1)
Quarter: 2013Q4

REPORT INFORMATION
  Report Type: Spontaneous
  Country: US (occurrence: US)
  Receive Date: 20131223
  Receipt Date: 20131223
  Transmission Date: 20140711
  Serious: Yes (Hospitalization, Other)
  Sender: FDA-Public Use
  Company Number: US-GILEAD-2013-0090518

PATIENT
  Age: 54 Year
  Sex: Female

DRUGS (20)
  1. LETAIRIS [Suspect]
     Indication: PRODUCT USED FOR UNKNOWN INDICATION
     Dosage: 5 MG, QD
     Route: 048
     Dates: start: 20131025
  2. HUMULIN [Concomitant]
  3. SILDENAFIL [Concomitant]
  4. GABAPENTIN [Concomitant]
  5. FUROSEMIDE [Concomitant]
  6. FOSINOPRIL [Concomitant]
  7. FOLIC ACID [Concomitant]
  8. METHOTREXATE [Concomitant]
  9. EFFIENT [Concomitant]
  10. CELEXA                             /00582602/ [Concomitant]
  11. ASPIRIN [Concomitant]
  12. ATORVASTATIN [Concomitant]
  13. JANUVIA [Concomitant]
  14. KLOR CON [Concomitant]
  15. METOPROLOL [Concomitant]
  16. NOVOLOG [Concomitant]
  17. PREDNISONE [Concomitant]
  18. TRAMADOL [Concomitant]
  19. PROMETHAZINE [Concomitant]
  20. REMERON [Concomitant]

REACTIONS (1)
  - Cardiac failure congestive [Not Recovered/Not Resolved]
